FAERS Safety Report 8854297 (Version 1)
Quarter: 2012Q4

REPORT INFORMATION
  Report Type: Spontaneous
  Country: US (occurrence: None)
  Receive Date: 20121019
  Receipt Date: 20121019
  Transmission Date: 20130627
  Serious: Yes (Other)
  Sender: FDA-Public Use
  Company Number: None

PATIENT
  Age: 7 Year
  Sex: Female
  Weight: 25.86 kg

DRUGS (2)
  1. VIMPAT [Suspect]
     Indication: SIMPLE PARTIAL SEIZURES
     Dosage: 300 mg in am, 400 mg in pm, twice daily, po
     Route: 048
     Dates: start: 20120724, end: 20121016
  2. VIMPAT [Suspect]
     Indication: COMPLEX PARTIAL SEIZURES
     Dosage: 300 mg in am, 400 mg in pm, twice daily, po
     Route: 048
     Dates: start: 20120724, end: 20121016

REACTIONS (4)
  - Nausea [None]
  - Dizziness [None]
  - Oscillopsia [None]
  - Nystagmus [None]
